FAERS Safety Report 13699944 (Version 1)
Quarter: 2017Q2

REPORT INFORMATION
  Report Type: Spontaneous
  Country: DE (occurrence: DE)
  Receive Date: 20170629
  Receipt Date: 20170629
  Transmission Date: 20170830
  Serious: Yes (Hospitalization)
  Sender: FDA-Public Use
  Company Number: DE-BAXTER-2017BAX025646

PATIENT
  Age: 22 Year
  Sex: Female

DRUGS (1)
  1. ISOFLURAN BAXTER [Suspect]
     Active Substance: ISOFLURANE
     Indication: SEDATIVE THERAPY
     Dosage: SEVERAL WEEKS; SEDATIVE THERAPY WITH AN AVERAGE END-TIDAL CONCENTRATION OF 1.0 VOLUME %
     Route: 055

REACTIONS (1)
  - Nuclear magnetic resonance imaging brain abnormal [Recovered/Resolved]

NARRATIVE: CASE EVENT DATE: 201508
